FAERS Safety Report 14918328 (Version 1)
Quarter: 2018Q2

REPORT INFORMATION
  Report Type: Spontaneous
  Country: US (occurrence: US)
  Receive Date: 20180502
  Receipt Date: 20180502
  Transmission Date: 20180711
  Serious: Yes (Hospitalization)
  Sender: FDA-Public Use
  Company Number: None

PATIENT
  Sex: Female

DRUGS (21)
  1. NYSTOP [Concomitant]
     Active Substance: NYSTATIN
  2. SIMVASTATIN. [Concomitant]
     Active Substance: SIMVASTATIN
  3. POT CHLORIDE [Concomitant]
     Active Substance: POTASSIUM CHLORIDE
  4. CITALOPRAM [Concomitant]
     Active Substance: CITALOPRAM HYDROBROMIDE
  5. LYRICA [Concomitant]
     Active Substance: PREGABALIN
  6. VITAMIN B-1 [Concomitant]
     Active Substance: THIAMINE
  7. FOLIC ACID. [Concomitant]
     Active Substance: FOLIC ACID
  8. SYMBICORT [Concomitant]
     Active Substance: BUDESONIDE\FORMOTEROL FUMARATE DIHYDRATE
  9. ALPRAZOLAM. [Concomitant]
     Active Substance: ALPRAZOLAM
  10. CALCIUM [Concomitant]
     Active Substance: CALCIUM
  11. ALPRAZOLAM. [Concomitant]
     Active Substance: ALPRAZOLAM
  12. TRAZODONE [Concomitant]
     Active Substance: TRAZODONE HYDROCHLORIDE
  13. METOPROLOL TARTRATE. [Concomitant]
     Active Substance: METOPROLOL TARTRATE
  14. TRAMADOL. [Concomitant]
     Active Substance: TRAMADOL
  15. SPIRIVA [Concomitant]
     Active Substance: TIOTROPIUM BROMIDE MONOHYDRATE
  16. ALBUTEROL. [Concomitant]
     Active Substance: ALBUTEROL
  17. OPSUMIT [Concomitant]
     Active Substance: MACITENTAN
  18. FUROSEMIDE. [Concomitant]
     Active Substance: FUROSEMIDE
  19. PROAIR HFA [Concomitant]
     Active Substance: ALBUTEROL SULFATE
  20. VITAMIN D3 [Concomitant]
     Active Substance: CHOLECALCIFEROL
  21. ADCIRCA [Suspect]
     Active Substance: TADALAFIL
     Indication: PULMONARY ARTERIAL HYPERTENSION
     Route: 048
     Dates: start: 20171101

REACTIONS (1)
  - Hospitalisation [None]
